FAERS Safety Report 11930063 (Version 1)
Quarter: 2016Q1

REPORT INFORMATION
  Report Type: Spontaneous
  Country: US (occurrence: US)
  Receive Date: 20160120
  Receipt Date: 20160120
  Transmission Date: 20160526
  Serious: No
  Sender: FDA-Public Use
  Company Number: US-WATSON-2015-19045

PATIENT
  Age: 75 Year
  Sex: Male

DRUGS (1)
  1. ALBUTEROL SULFATE-IPRATROPIUM BROMIDE (WATSON LABORATORIES) [Suspect]
     Active Substance: ALBUTEROL SULFATE\IPRATROPIUM BROMIDE
     Indication: CHRONIC OBSTRUCTIVE PULMONARY DISEASE
     Dosage: 0.5MG/3MG PER 3ML, 6/DAY
     Route: 055

REACTIONS (4)
  - Product quality issue [None]
  - Dysgeusia [Recovered/Resolved]
  - Respiratory disorder [Recovered/Resolved]
  - Product physical consistency issue [None]

NARRATIVE: CASE EVENT DATE: 2015
